FAERS Safety Report 24429439 (Version 1)
Quarter: 2024Q4

REPORT INFORMATION
  Report Type: Report from Study
  Country: FR (occurrence: FR)
  Receive Date: 20241011
  Receipt Date: 20241011
  Transmission Date: 20250115
  Serious: Yes (Other)
  Sender: CARA THERAPEUTICS
  Company Number: FR-Vifor Pharma-VIT-2024-08966

PATIENT
  Age: 74 Year
  Sex: Male

DRUGS (1)
  1. KORSUVA [Suspect]
     Active Substance: DIFELIKEFALIN ACETATE
     Indication: Chronic kidney disease-associated pruritus
     Dosage: ADMINISTERED TOTAL 3 INJECTIONS

REACTIONS (2)
  - Skin burning sensation [Unknown]
  - Dizziness [Unknown]
